FAERS Safety Report 8716109 (Version 2)
Quarter: 2013Q2

REPORT INFORMATION
  Report Type: Spontaneous
  Country: US (occurrence: US)
  Receive Date: 20120809
  Receipt Date: 20130409
  Transmission Date: 20140414
  Serious: Yes (Other)
  Sender: FDA-Public Use
  Company Number: PHHY2012US067345

PATIENT
  Age: 58 Year
  Sex: Male

DRUGS (1)
  1. CITALOPRAM [Suspect]
     Indication: DEPRESSION

REACTIONS (6)
  - Tourette^s disorder [Recovering/Resolving]
  - Tic [Recovering/Resolving]
  - Muscle contractions involuntary [Recovering/Resolving]
  - Sensory disturbance [Recovering/Resolving]
  - Grunting [Recovering/Resolving]
  - Dyskinesia [Recovering/Resolving]
